FAERS Safety Report 5358948-X (Version None)
Quarter: 2007Q2

REPORT INFORMATION
  Report Type: 
  Country: None (occurrence: None)
  Receive Date: 20070615
  Receipt Date: 20070613
  Transmission Date: 20071010
  Serious: Yes (Hospitalization)
  Sender: FDA-Public Use
  Company Number: D0053600A

PATIENT
  Age: 77 Year
  Sex: Female
  Weight: 65 kg

DRUGS (1)
  1. QUILONUM RETARD [Suspect]
     Dosage: 450MG PER DAY
     Route: 048

REACTIONS (8)
  - COORDINATION ABNORMAL [None]
  - DISTURBANCE IN ATTENTION [None]
  - GAIT DISTURBANCE [None]
  - NAUSEA [None]
  - POISONING [None]
  - RENAL FAILURE [None]
  - SOMNOLENCE [None]
  - TREMOR [None]
